FAERS Safety Report 8034487-2 (Version None)
Quarter: 2012Q1

REPORT INFORMATION
  Report Type: 
  Country: None (occurrence: None)
  Receive Date: 20120110
  Receipt Date: 20120103
  Transmission Date: 20120608
  Serious: Yes (Hospitalization)
  Sender: FDA-Public Use
  Company Number: IE-B.I. PHARMACEUTICALS,INC./RIDGEFIELD-2012-UK-00007UK

PATIENT
  Age: 55 Year
  Sex: Male

DRUGS (3)
  1. TWYNSTA [Suspect]
     Indication: HYPERTENSION
     Dosage: 80/10MG A DAY
     Dates: start: 20111201, end: 20111201
  2. MICARDIS [Concomitant]
     Indication: HYPERTENSION
  3. ZANADIC [Concomitant]
     Indication: HYPERTENSION

REACTIONS (2)
  - JOINT SWELLING [None]
  - DEEP VEIN THROMBOSIS [None]
